FAERS Safety Report 13190973 (Version 1)
Quarter: 2017Q1

REPORT INFORMATION
  Report Type: Spontaneous
  Country: AT (occurrence: AT)
  Receive Date: 20170206
  Receipt Date: 20170206
  Transmission Date: 20170428
  Serious: Yes (Other)
  Sender: FDA-Public Use
  Company Number: AT-BRISTOL-MYERS SQUIBB COMPANY-BMS-2017-008776

PATIENT
  Age: 84 Year
  Sex: Female

DRUGS (1)
  1. HYDROXYUREA. [Suspect]
     Active Substance: HYDROXYUREA
     Indication: POLYCYTHAEMIA VERA
     Dosage: 1 G, QD
     Route: 065

REACTIONS (5)
  - Actinic keratosis [Recovering/Resolving]
  - Skin ulcer [Recovering/Resolving]
  - Electrocoagulation [Unknown]
  - Biopsy [Unknown]
  - Dermatomyositis [Recovering/Resolving]
